FAERS Safety Report 11404272 (Version 2)
Quarter: 2015Q3

REPORT INFORMATION
  Report Type: Spontaneous
  Country: JP (occurrence: JP)
  Receive Date: 20150821
  Receipt Date: 20150827
  Transmission Date: 20151125
  Serious: Yes (Hospitalization)
  Sender: FDA-Public Use
  Company Number: JP-SA-2015SA121636

PATIENT
  Age: 63 Year
  Sex: Female

DRUGS (10)
  1. FLUOROURACIL. [Concomitant]
     Active Substance: FLUOROURACIL
     Indication: METASTASES TO LYMPH NODES
  2. OXALIPLATIN. [Suspect]
     Active Substance: OXALIPLATIN
     Indication: COLON CANCER RECURRENT
     Route: 065
  3. FOLINIC ACID [Concomitant]
     Active Substance: LEUCOVORIN
     Indication: COLON CANCER RECURRENT
  4. BUCILLAMINE [Concomitant]
     Active Substance: BUCILLAMINE
  5. FOLINIC ACID [Concomitant]
     Active Substance: LEUCOVORIN
     Indication: METASTASES TO LYMPH NODES
  6. VOGLIBOSE [Concomitant]
     Active Substance: VOGLIBOSE
  7. METHOTREXATE [Concomitant]
     Active Substance: METHOTREXATE
  8. OXALIPLATIN. [Suspect]
     Active Substance: OXALIPLATIN
     Indication: METASTASES TO LYMPH NODES
     Route: 065
  9. INSULIN [Concomitant]
     Active Substance: INSULIN NOS
  10. FLUOROURACIL. [Concomitant]
     Active Substance: FLUOROURACIL
     Indication: COLON CANCER RECURRENT

REACTIONS (9)
  - Computerised tomogram abnormal [Unknown]
  - Biopsy liver abnormal [Unknown]
  - Portal hypertension [Unknown]
  - Nodular regenerative hyperplasia [Unknown]
  - Blood alkaline phosphatase increased [Unknown]
  - Varices oesophageal [Recovered/Resolved]
  - Autoantibody positive [Unknown]
  - Splenomegaly [Unknown]
  - Antinuclear antibody positive [Unknown]
